FAERS Safety Report 14101725 (Version 1)
Quarter: 2017Q4

REPORT INFORMATION
  Report Type: Spontaneous
  Country: FR (occurrence: FR)
  Receive Date: 20171018
  Receipt Date: 20171018
  Transmission Date: 20180321
  Serious: Yes (Other)
  Sender: FDA-Public Use
  Company Number: FR-MERCK KGAA-2030439

PATIENT
  Sex: Female

DRUGS (2)
  1. NOVOTHYROX [Suspect]
     Active Substance: LEVOTHYROXINE SODIUM
  2. NOVOTHYROX [Suspect]
     Active Substance: LEVOTHYROXINE SODIUM
     Indication: HYPERTHYROIDISM

REACTIONS (10)
  - Urinary tract disorder [None]
  - Insomnia [Not Recovered/Not Resolved]
  - Hyperthyroidism [None]
  - Visual impairment [None]
  - Tinnitus [Not Recovered/Not Resolved]
  - Muscle contractions involuntary [None]
  - Blood thyroid stimulating hormone abnormal [None]
  - Weight decreased [None]
  - Headache [None]
  - Fatigue [None]

NARRATIVE: CASE EVENT DATE: 201706
